FAERS Safety Report 11590784 (Version 1)
Quarter: 2015Q4

REPORT INFORMATION
  Report Type: Spontaneous
  Country: US (occurrence: US)
  Receive Date: 20151002
  Receipt Date: 20151002
  Transmission Date: 20160304
  Serious: Yes (Death, Other)
  Sender: FDA-Public Use
  Company Number: US-ABBVIE-15P-163-1472848-00

PATIENT
  Age: 53 Year
  Sex: Female
  Weight: 134.84 kg

DRUGS (1)
  1. VIEKIRA PAK [Suspect]
     Active Substance: DASABUVIR\OMBITASVIR\PARITAPREVIR\RITONAVIR
     Indication: HEPATITIS C
     Route: 048
     Dates: start: 201507, end: 201508

REACTIONS (2)
  - Blood bilirubin increased [Unknown]
  - Death [Fatal]

NARRATIVE: CASE EVENT DATE: 201508
